FAERS Safety Report 21901790 (Version 1)
Quarter: 2023Q1

REPORT INFORMATION
  Report Type: Spontaneous
  Country: JP (occurrence: JP)
  Receive Date: 20230124
  Receipt Date: 20230124
  Transmission Date: 20230418
  Serious: Yes (Hospitalization, Other)
  Sender: FDA-Public Use
  Company Number: None

PATIENT
  Age: 26 Year
  Sex: Female
  Weight: 66 kg

DRUGS (8)
  1. TACROLIMUS [Suspect]
     Active Substance: TACROLIMUS
     Indication: Colitis ulcerative
     Dosage: 5 MILLIGRAM, PER DAY
     Route: 065
     Dates: start: 2019
  2. PREDNISOLONE [Suspect]
     Active Substance: PREDNISOLONE
     Indication: Colitis ulcerative
     Dosage: UNK. TOTAL STEROID DOSE: 8570 MG PREDNISOLONE (PSL) OR EQUIVALENT.
     Route: 065
     Dates: start: 2019
  3. PREDNISOLONE [Suspect]
     Active Substance: PREDNISOLONE
     Dosage: 20 MILLIGRAM, PER DAY
     Route: 065
     Dates: start: 2019
  4. AZATHIOPRINE [Suspect]
     Active Substance: AZATHIOPRINE
     Indication: Colitis ulcerative
     Dosage: UNK
     Route: 065
  5. TOFACITINIB [Suspect]
     Active Substance: TOFACITINIB
     Indication: Colitis ulcerative
     Dosage: 20 MILLIGRAM, PER DAY
     Route: 065
     Dates: start: 201909
  6. HYDROCORTONE [Suspect]
     Active Substance: HYDROCORTISONE
     Indication: Product used for unknown indication
     Dosage: 100 MILLIGRAM, DURING SURGERY
     Route: 065
     Dates: start: 2019
  7. HYDROCORTONE [Suspect]
     Active Substance: HYDROCORTISONE
     Dosage: 200 MILLIGRAM, PER DAY
     Route: 065
     Dates: start: 2019
  8. INFLIXIMAB [Suspect]
     Active Substance: INFLIXIMAB
     Indication: Colitis ulcerative
     Dosage: 5 MILLIGRAM/KILOGRAM PER 2 WEEKS
     Route: 065
     Dates: start: 201908

REACTIONS (10)
  - Pelvic venous thrombosis [Recovered/Resolved]
  - Vena cava thrombosis [Recovered/Resolved]
  - Pulmonary artery thrombosis [Recovered/Resolved]
  - Jugular vein thrombosis [Recovered/Resolved]
  - Pneumonia pseudomonal [Recovered/Resolved]
  - Lung abscess [Recovered/Resolved]
  - Septic pulmonary embolism [Recovered/Resolved]
  - Infective thrombosis [Recovered/Resolved]
  - Haematological infection [Recovered/Resolved]
  - Off label use [Unknown]

NARRATIVE: CASE EVENT DATE: 20190101
